FAERS Safety Report 8624592-1 (Version None)
Quarter: 2012Q3

REPORT INFORMATION
  Report Type: 
  Country: None (occurrence: None)
  Receive Date: 20120810
  Receipt Date: 20120730
  Transmission Date: 20120928
  Serious: Yes (Other)
  Sender: FDA-Public Use
  Company Number: 2012P2052300

PATIENT
  Age: 56 Year
  Sex: Male

DRUGS (6)
  1. SULUFASALZINE [Concomitant]
  2. METHOTREXATE [Concomitant]
  3. ISONIAZID [Suspect]
     Indication: PROPHYLACTIC CHEMOTHERAPY
     Dosage: 300 MG;QD, 25 MG;QD 3 DAYS ; 50 MG;QD 3 DAYS ; 100 MG;QD 3 DAYS; 200 MG;QD 5 DAYS
  4. ISONIAZID [Suspect]
     Indication: PROPHYLACTIC CHEMOTHERAPY
     Dosage: 300 MG;QD, 25 MG;QD 3 DAYS ; 50 MG;QD 3 DAYS ; 100 MG;QD 3 DAYS; 200 MG;QD 5 DAYS
  5. ISONIAZID [Suspect]
     Indication: PROPHYLACTIC CHEMOTHERAPY
     Dosage: 300 MG;QD, 25 MG;QD 3 DAYS ; 50 MG;QD 3 DAYS ; 100 MG;QD 3 DAYS; 200 MG;QD 5 DAYS
  6. ISONIAZID [Suspect]
     Indication: PROPHYLACTIC CHEMOTHERAPY
     Dosage: 300 MG;QD, 25 MG;QD 3 DAYS ; 50 MG;QD 3 DAYS ; 100 MG;QD 3 DAYS; 200 MG;QD 5 DAYS

REACTIONS (2)
  - INTERSTITIAL LUNG DISEASE [None]
  - DRUG HYPERSENSITIVITY [None]
